FAERS Safety Report 11339579 (Version 7)
Quarter: 2016Q2

REPORT INFORMATION
  Report Type: Report from Study
  Country: CA (occurrence: CA)
  Receive Date: 20150805
  Receipt Date: 20160503
  Transmission Date: 20160815
  Serious: Yes (Death, Hospitalization)
  Sender: FDA-Public Use
  Company Number: CA-ROCHE-ITM201505IM016292

PATIENT
  Age: 69 Year
  Sex: Male

DRUGS (16)
  1. ESBRIET [Suspect]
     Active Substance: PIRFENIDONE
     Route: 048
     Dates: start: 20150427
  2. ASA [Concomitant]
     Active Substance: ASPIRIN
     Route: 065
  3. TECTA [Concomitant]
     Active Substance: PANTOPRAZOLE MAGNESIUM
  4. ROSUVASTATIN. [Concomitant]
     Active Substance: ROSUVASTATIN
  5. ESBRIET [Suspect]
     Active Substance: PIRFENIDONE
     Indication: IDIOPATHIC PULMONARY FIBROSIS
     Route: 048
     Dates: start: 20140918
  6. ESBRIET [Suspect]
     Active Substance: PIRFENIDONE
     Route: 048
     Dates: start: 20140925
  7. ESBRIET [Suspect]
     Active Substance: PIRFENIDONE
     Dosage: 534 MG-267 MG-534 MG
     Route: 048
     Dates: start: 20150601
  8. CANDESARTAN [Concomitant]
     Active Substance: CANDESARTAN
  9. VENTOLIN [Concomitant]
     Active Substance: ALBUTEROL SULFATE
  10. ESBRIET [Suspect]
     Active Substance: PIRFENIDONE
     Route: 048
     Dates: start: 20150608
  11. ESBRIET [Suspect]
     Active Substance: PIRFENIDONE
     Route: 048
     Dates: start: 20150519
  12. ACETYLCYSTEINE. [Concomitant]
     Active Substance: ACETYLCYSTEINE
  13. EZETROL [Concomitant]
     Active Substance: EZETIMIBE
  14. ESBRIET [Suspect]
     Active Substance: PIRFENIDONE
     Route: 048
     Dates: start: 20150328
  15. ESBRIET [Suspect]
     Active Substance: PIRFENIDONE
     Route: 048
     Dates: start: 20150521
  16. ESBRIET [Suspect]
     Active Substance: PIRFENIDONE
     Route: 048
     Dates: start: 20151002

REACTIONS (18)
  - Productive cough [Not Recovered/Not Resolved]
  - Dyspnoea [Unknown]
  - Cough [Unknown]
  - Lung disorder [Recovering/Resolving]
  - Nail discolouration [Unknown]
  - Asthenia [Unknown]
  - Exercise tolerance decreased [Recovering/Resolving]
  - Vomiting [Unknown]
  - Fatigue [Not Recovered/Not Resolved]
  - Abdominal discomfort [Unknown]
  - Malaise [Not Recovered/Not Resolved]
  - Oxygen saturation decreased [Unknown]
  - Dyspnoea [Unknown]
  - Death [Fatal]
  - Pneumonia [Unknown]
  - Drug ineffective [Unknown]
  - Gait disturbance [Unknown]
  - General physical health deterioration [Unknown]

NARRATIVE: CASE EVENT DATE: 20141113
